FAERS Safety Report 8234487-3 (Version None)
Quarter: 2012Q1

REPORT INFORMATION
  Report Type: 
  Country: None (occurrence: None)
  Receive Date: 20120322
  Receipt Date: 20120313
  Transmission Date: 20120608
  Serious: Yes (Hospitalization, Other)
  Sender: FDA-Public Use
  Company Number: 2012-023251

PATIENT
  Age: 58 Year
  Sex: Male
  Weight: 67.1324 kg

DRUGS (6)
  1. CANDESARTAN CILEXETIL (CANDESARTAN CILEXETIL) TABLET [Concomitant]
  2. CLOPIDOGREL BISULFATE [Suspect]
     Dosage: DAILY DOSE 75 MG, ORAL
     Route: 048
     Dates: end: 20100501
  3. DILTIAZEM HYDROCHLORIDE [Concomitant]
  4. ISOSORBIDE DINITRATE (ISOSORBIDE DINITRATE) TRANSDERMAL PATCH [Concomitant]
  5. ACETYLSALICYLIC ACID SRT [Suspect]
     Indication: ACUTE MYOCARDIAL INFARCTION
     Dosage: DAILY DOSE 200 MG, ORAL
     Route: 048
     Dates: end: 20100501
  6. ATORVASTATIN CALCIUM [Concomitant]

REACTIONS (22)
  - HAEMATOCRIT DECREASED [None]
  - WOUND HAEMORRHAGE [None]
  - ACUTE MYOCARDIAL INFARCTION [None]
  - BLOOD PH INCREASED [None]
  - INTERNATIONAL NORMALISED RATIO DECREASED [None]
  - PCO2 DECREASED [None]
  - ALANINE AMINOTRANSFERASE INCREASED [None]
  - ELECTROCARDIOGRAM T WAVE INVERSION [None]
  - PLATELET COUNT INCREASED [None]
  - VENTRICULAR FIBRILLATION [None]
  - DEVICE OCCLUSION [None]
  - PULMONARY OEDEMA [None]
  - ELECTROCARDIOGRAM POOR R-WAVE PROGRESSION [None]
  - PO2 INCREASED [None]
  - WHITE BLOOD CELL COUNT INCREASED [None]
  - THROMBOSIS IN DEVICE [None]
  - HAEMORRHOID OPERATION [None]
  - BODY TEMPERATURE DECREASED [None]
  - RED BLOOD CELL COUNT DECREASED [None]
  - HAEMOGLOBIN DECREASED [None]
  - CARDIOGENIC SHOCK [None]
  - ELECTROCARDIOGRAM Q WAVE ABNORMAL [None]
